FAERS Safety Report 6597198-6 (Version None)
Quarter: 2010Q1

REPORT INFORMATION
  Report Type: 
  Country: None (occurrence: None)
  Receive Date: 20100223
  Receipt Date: 20100209
  Transmission Date: 20100710
  Serious: Yes (Other)
  Sender: FDA-Public Use
  Company Number: PHHY2010CA08891

PATIENT
  Sex: Female

DRUGS (6)
  1. ACLASTA [Suspect]
     Dosage: UNK
     Dates: start: 20090401
  2. CORTISONE [Concomitant]
     Dosage: 5 MG/DAY
  3. PLAQUENIL [Concomitant]
     Dosage: 200 MG/DAY
  4. CARBOCAL D [Concomitant]
     Dosage: 400 IU, BID
  5. PANTOPRAZOLE [Concomitant]
     Dosage: 40 MG, UNK
  6. COUMADIN [Concomitant]
     Indication: PHLEBITIS

REACTIONS (9)
  - ANAL CANCER [None]
  - BALANCE DISORDER [None]
  - BREAST CANCER [None]
  - COLON CANCER [None]
  - METASTASES TO BONE [None]
  - MOVEMENT DISORDER [None]
  - MYALGIA [None]
  - PAIN [None]
  - VEIN DISORDER [None]
